FAERS Safety Report 4802534-4 (Version None)
Quarter: 2005Q4

REPORT INFORMATION
  Report Type: 
  Country: None (occurrence: None)
  Receive Date: 20051014
  Receipt Date: 20050811
  Transmission Date: 20060501
  Serious: Yes (Life-Threatening, Other)
  Sender: FDA-Public Use
  Company Number: 2004114821

PATIENT
  Age: 59 Year
  Sex: Female

DRUGS (2)
  1. NEURONTIN [Suspect]
     Indication: NEURALGIA
     Dosage: 2400 MG (800 MG, 3 IN 1 D), ORAL
     Route: 048
     Dates: start: 20010529, end: 20030101
  2. VIOXX [Suspect]
     Indication: ILL-DEFINED DISORDER

REACTIONS (4)
  - AMNESIA [None]
  - BIPOLAR DISORDER [None]
  - DEPRESSION [None]
  - SUICIDE ATTEMPT [None]
